FAERS Safety Report 11538868 (Version 1)
Quarter: 2015Q3

REPORT INFORMATION
  Report Type: Spontaneous
  Country: US (occurrence: US)
  Receive Date: 20150923
  Receipt Date: 20150923
  Transmission Date: 20151125
  Serious: No
  Sender: FDA-Public Use
  Company Number: US-ASTRAZENECA-2015SE88932

PATIENT
  Sex: Male

DRUGS (3)
  1. PRILOSEC OTC [Suspect]
     Active Substance: OMEPRAZOLE MAGNESIUM
     Route: 048
     Dates: start: 20150909
  2. AMOX [Concomitant]
     Active Substance: UNSPECIFIED INGREDIENT
  3. POLYMYXIN [Concomitant]
     Active Substance: POLYMYXIN
     Route: 047

REACTIONS (3)
  - Eye irritation [Recovered/Resolved]
  - Hypersensitivity [Recovering/Resolving]
  - Eyelid disorder [Recovering/Resolving]

NARRATIVE: CASE EVENT DATE: 20150910
